FAERS Safety Report 5466747-3 (Version None)
Quarter: 2007Q3

REPORT INFORMATION
  Report Type: 
  Country: None (occurrence: None)
  Receive Date: 20070924
  Receipt Date: 20070924
  Transmission Date: 20080115
  Serious: Yes (Death, Hospitalization)
  Sender: FDA-Public Use
  Company Number: None

PATIENT
  Age: 69 Year
  Sex: Female

DRUGS (1)
  1. SODIUM PHOSPHATE DIBASIC/SODIUM PHOSPHATE [Suspect]
     Indication: COLONOSCOPY
     Dosage: 45 ML;X1;PO
     Route: 048

REACTIONS (16)
  - ABDOMINAL PAIN [None]
  - BLOOD CHLORIDE DECREASED [None]
  - DRUG INEFFECTIVE [None]
  - GASTROINTESTINAL MUCOSAL NECROSIS [None]
  - GASTROINTESTINAL SOUNDS ABNORMAL [None]
  - HYPERPHOSPHATAEMIA [None]
  - HYPOTENSION [None]
  - IMPAIRED HEALING [None]
  - INTESTINAL ISCHAEMIA [None]
  - NAUSEA [None]
  - NOSOCOMIAL INFECTION [None]
  - PLEURAL EFFUSION [None]
  - PNEUMONIA [None]
  - TACHYCARDIA [None]
  - VOMITING [None]
  - WEANING FAILURE [None]
